FAERS Safety Report 19233879 (Version 4)
Quarter: 2021Q2

REPORT INFORMATION
  Report Type: Spontaneous
  Country: CA (occurrence: CA)
  Receive Date: 20210508
  Receipt Date: 20210628
  Transmission Date: 20210717
  Serious: Yes (Other)
  Sender: FDA-Public Use
  Company Number: CA-CELLTRION INC.-2020CA033640

PATIENT

DRUGS (9)
  1. INFLECTRA [Suspect]
     Active Substance: INFLIXIMAB-DYYB
     Dosage: 600 MG, 0, 2, 6, THEN EVERY 4 WEEKS
     Route: 042
     Dates: start: 20210611
  2. INFLECTRA [Suspect]
     Active Substance: INFLIXIMAB-DYYB
     Indication: CROHN^S DISEASE
     Dosage: 600 MG (10 MG/KG), 0, 2, 6, THEN EVERY 4 WEEKS (WEEK 0)
     Route: 042
     Dates: start: 20201211
  3. INFLECTRA [Suspect]
     Active Substance: INFLIXIMAB-DYYB
     Dosage: 600 MG (10MG/KG), 0, 2, 6, THEN EVERY 4 WEEKS (1 DF WEEK 6 DOSE (RECEIVED IN HOSPITAL))
     Route: 042
     Dates: start: 20210122
  4. INFLECTRA [Suspect]
     Active Substance: INFLIXIMAB-DYYB
     Dosage: 600 MG (10 MG/KG), 0, 2, 6, THEN EVERY 4 WEEKS
     Route: 042
     Dates: start: 20210319
  5. INFLECTRA [Suspect]
     Active Substance: INFLIXIMAB-DYYB
     Dosage: 600 MG (10 MG/KG), 0, 2, 6, THEN EVERY 4 WEEKS
     Route: 042
     Dates: start: 20210219
  6. INFLECTRA [Suspect]
     Active Substance: INFLIXIMAB-DYYB
     Dosage: 10 MG/KG, EVERY 8 WEEKS
     Route: 042
     Dates: start: 20210416
  7. INFLECTRA [Suspect]
     Active Substance: INFLIXIMAB-DYYB
     Dosage: 10 MG/KG, EVERY 8 WEEKS
     Route: 042
     Dates: start: 20210514
  8. METHOTREXATE. [Concomitant]
     Active Substance: METHOTREXATE
     Dosage: 1 DF
  9. INFLECTRA [Suspect]
     Active Substance: INFLIXIMAB-DYYB
     Dosage: 600 MG (10 MG/KG), 0, 2, 6, THEN EVERY 4 WEEKS (WEEK 2)
     Route: 042
     Dates: start: 20201224

REACTIONS (7)
  - Infusion site bruising [Unknown]
  - Sinusitis [Recovered/Resolved]
  - Inappropriate schedule of product administration [Unknown]
  - Off label use [Unknown]
  - Condition aggravated [Recovering/Resolving]
  - Lymphocyte count abnormal [Unknown]
  - Weight decreased [Unknown]

NARRATIVE: CASE EVENT DATE: 20201211
